FAERS Safety Report 6292640-2 (Version None)
Quarter: 2009Q3

REPORT INFORMATION
  Report Type: 
  Country: None (occurrence: None)
  Receive Date: 20090729
  Receipt Date: 20090720
  Transmission Date: 20100115
  Serious: Yes (Life-Threatening)
  Sender: FDA-Public Use
  Company Number: ADR10492009

PATIENT
  Age: 73 Year
  Sex: Male

DRUGS (6)
  1. AMLODIPINE [Suspect]
     Indication: HYPERTENSION
     Dosage: 5MG ORAL
     Route: 048
     Dates: start: 20070821, end: 20070828
  2. BENDROFLUAZIDE [Concomitant]
  3. IRBESARTAN [Concomitant]
  4. NIFEDIPINE [Concomitant]
  5. RAMIPRIL [Concomitant]
  6. SIMVASTATIN [Concomitant]

REACTIONS (2)
  - ABDOMINAL DISCOMFORT [None]
  - VASCULITIS [None]
